FAERS Safety Report 5248654-4 (Version None)
Quarter: 2007Q1

REPORT INFORMATION
  Report Type: 
  Country: None (occurrence: None)
  Receive Date: 20070226
  Receipt Date: 20070226
  Transmission Date: 20070707
  Serious: Yes (Life-Threatening, Other)
  Sender: FDA-Public Use
  Company Number: None

PATIENT
  Age: 61 Year
  Sex: Male
  Weight: 106.5953 kg

DRUGS (1)
  1. AMOXICILLIN + CLAVULANATE POTASSIUM [Suspect]
     Indication: SINUSITIS
     Dosage: 500 MG/125 MG 1 PER DAY PO
     Route: 048
     Dates: start: 20060808, end: 20060818

REACTIONS (7)
  - ASTHENIA [None]
  - EXERCISE TOLERANCE DECREASED [None]
  - FATIGUE [None]
  - HEPATOCELLULAR DAMAGE [None]
  - IMPAIRED WORK ABILITY [None]
  - JAUNDICE [None]
  - WEIGHT DECREASED [None]
